FAERS Safety Report 5986778-4 (Version None)
Quarter: 2008Q4

REPORT INFORMATION
  Report Type: 
  Country: None (occurrence: None)
  Receive Date: 20081209
  Receipt Date: 20080408
  Transmission Date: 20090506
  Serious: No
  Sender: FDA-Public Use
  Company Number: US-AMGEN-KDL273735

PATIENT
  Sex: Female

DRUGS (1)
  1. ENBREL [Suspect]
     Indication: RHEUMATOID ARTHRITIS
     Route: 058
     Dates: start: 20001215

REACTIONS (10)
  - BLOOD URINE PRESENT [None]
  - DERMAL CYST [None]
  - HEADACHE [None]
  - INJECTION SITE IRRITATION [None]
  - LOCALISED INFECTION [None]
  - PAIN [None]
  - PHARYNGITIS STREPTOCOCCAL [None]
  - PRODUCTIVE COUGH [None]
  - PROTEIN URINE [None]
  - URTICARIA [None]
